FAERS Safety Report 12699194 (Version 1)
Quarter: 2016Q3

REPORT INFORMATION
  Report Type: Report from Study
  Country: AU (occurrence: AU)
  Receive Date: 20160830
  Receipt Date: 20160830
  Transmission Date: 20161109
  Serious: Yes (Hospitalization)
  Sender: FDA-Public Use
  Company Number: PHHO2011AU15280

PATIENT
  Age: 47 Year
  Sex: Female
  Weight: 55 kg

DRUGS (5)
  1. AFINITOR [Suspect]
     Active Substance: EVEROLIMUS
     Dosage: 5 MG, QD
     Route: 048
     Dates: start: 20110922
  2. COMPARATOR VINORELBINE [Suspect]
     Active Substance: VINORELBINE TARTRATE
     Indication: BREAST CANCER METASTATIC
     Dosage: 38 MG, UNK
     Route: 042
     Dates: start: 20110922
  3. COMPARATOR VINORELBINE [Suspect]
     Active Substance: VINORELBINE TARTRATE
     Dosage: 38 MG, UNK
     Route: 042
     Dates: start: 20110722, end: 20110908
  4. COMPARATOR TRASTUZUMAB [Suspect]
     Active Substance: TRASTUZUMAB
     Indication: BREAST CANCER METASTATIC
     Dosage: 107 MG, UNK
     Route: 042
     Dates: start: 20110722
  5. AFINITOR [Suspect]
     Active Substance: EVEROLIMUS
     Indication: BREAST CANCER METASTATIC
     Dosage: 5 MG, QD
     Route: 048
     Dates: start: 20110722, end: 20110908

REACTIONS (2)
  - Pyrexia [Recovering/Resolving]
  - Concomitant disease progression [Recovering/Resolving]

NARRATIVE: CASE EVENT DATE: 20110902
